FAERS Safety Report 6097126-6 (Version None)
Quarter: 2009Q1

REPORT INFORMATION
  Report Type: 
  Country: None (occurrence: None)
  Receive Date: 20090227
  Receipt Date: 20081208
  Transmission Date: 20090719
  Serious: No
  Sender: FDA-Public Use
  Company Number: US-PFIZER INC-2008154075

PATIENT
  Sex: Male
  Weight: 83.9 kg

DRUGS (2)
  1. LYRICA [Suspect]
     Indication: NEUROPATHY PERIPHERAL
     Dosage: 50 MG, 3X/DAY
  2. METFORMIN [Concomitant]
     Dosage: UNK

REACTIONS (7)
  - DIZZINESS [None]
  - DRUG INEFFECTIVE [None]
  - EAR INFECTION [None]
  - EYELID DISORDER [None]
  - SOMNOLENCE [None]
  - VISION BLURRED [None]
  - VISUAL ACUITY REDUCED [None]
